FAERS Safety Report 25950944 (Version 1)
Quarter: 2025Q4

REPORT INFORMATION
  Report Type: Other
  Country: US (occurrence: US)
  Receive Date: 20251023
  Receipt Date: 20251023
  Transmission Date: 20260118
  Serious: No
  Sender: TIME CAPS
  Company Number: US-Time-Cap Labs, Inc.-2187112

PATIENT
  Age: 66 Year
  Sex: Male
  Weight: 87.727 kg

DRUGS (7)
  1. DIETARY SUPPLEMENT [Suspect]
     Active Substance: DIETARY SUPPLEMENT
     Indication: Nutritional supplementation
  2. HYDROCHLOROTHIAZIDE [Concomitant]
     Active Substance: HYDROCHLOROTHIAZIDE
  3. OMEPRAZOLE [Concomitant]
     Active Substance: OMEPRAZOLE
  4. ASPIRIN [Concomitant]
     Active Substance: ASPIRIN
  5. SIMVASTATIN [Concomitant]
     Active Substance: SIMVASTATIN
  6. AMLODIPINE BESYLATE [Concomitant]
     Active Substance: AMLODIPINE BESYLATE
  7. ATENOLOL [Concomitant]
     Active Substance: ATENOLOL

REACTIONS (1)
  - Diarrhoea [Unknown]
